FAERS Safety Report 11086470 (Version 1)
Quarter: 2015Q2

REPORT INFORMATION
  Report Type: Spontaneous
  Country: US (occurrence: None)
  Receive Date: 20150501
  Receipt Date: 20150501
  Transmission Date: 20150821
  Serious: Yes (Death)
  Sender: FDA-Public Use
  Company Number: None

PATIENT
  Age: 57 Year
  Sex: Female
  Weight: 206 kg

DRUGS (1)
  1. NIPENT [Suspect]
     Active Substance: PENTOSTATIN
     Indication: HAIRY CELL LEUKAEMIA
     Dosage: 3 DOSES?10 + 12.8 MG Q14 DAYS
     Route: 042

REACTIONS (7)
  - Blood creatinine increased [None]
  - Febrile neutropenia [None]
  - Nephropathy toxic [None]
  - Acute kidney injury [None]
  - Tumour lysis syndrome [None]
  - Hyperuricaemia [None]
  - Rash [None]

NARRATIVE: CASE EVENT DATE: 20150425
